FAERS Safety Report 5739738-2 (Version None)
Quarter: 2008Q2

REPORT INFORMATION
  Report Type: 
  Country: None (occurrence: None)
  Receive Date: 20080512
  Receipt Date: 20080512
  Transmission Date: 20081010
  Serious: Yes (Hospitalization)
  Sender: FDA-Public Use
  Company Number: None

PATIENT
  Age: 89 Year
  Sex: Male

DRUGS (2)
  1. WARFARIN SODIUM [Suspect]
     Indication: ATRIAL FIBRILLATION
     Dosage: 2.5MG DAILY PO
     Route: 048
  2. LEVOFLOXACIN [Suspect]
     Indication: INFECTION

REACTIONS (3)
  - CONFUSIONAL STATE [None]
  - CONTUSION [None]
  - INTERNATIONAL NORMALISED RATIO INCREASED [None]
